FAERS Safety Report 26126460 (Version 1)
Quarter: 2025Q4

REPORT INFORMATION
  Report Type: Report from Study
  Country: US (occurrence: US)
  Receive Date: 20251205
  Receipt Date: 20251205
  Transmission Date: 20260118
  Serious: Yes (Hospitalization, Other)
  Sender: ALEXION PHARMACEUTICALS
  Company Number: US-ASTRAZENECA-202511NAM028956US

PATIENT
  Sex: Female

DRUGS (1)
  1. OLAPARIB [Suspect]
     Active Substance: OLAPARIB
     Indication: Breast cancer female
     Dosage: 300 MILLIGRAM, BID
     Dates: start: 20251001

REACTIONS (6)
  - Sepsis [Unknown]
  - Staphylococcal infection [Unknown]
  - Joint swelling [Unknown]
  - Arthralgia [Unknown]
  - Thrombosis [Unknown]
  - Adverse drug reaction [Unknown]
